FAERS Safety Report 5662442-6 (Version None)
Quarter: 2008Q1

REPORT INFORMATION
  Report Type: 
  Country: None (occurrence: None)
  Receive Date: 20080313
  Receipt Date: 20080306
  Transmission Date: 20080703
  Serious: Yes (Hospitalization)
  Sender: FDA-Public Use
  Company Number: JP-ALLERGAN-0713478US

PATIENT
  Sex: Male

DRUGS (3)
  1. BLINDED BOTOX PLACEBO [Suspect]
     Indication: MUSCLE SPASMS
     Dosage: 240 UNITS, SINGLE
     Route: 030
     Dates: start: 20071016, end: 20071016
  2. BLINDED BOTULINUM TOXIN TYPE A - GENERAL [Suspect]
     Indication: MUSCLE SPASMS
     Dosage: 240 UNITS, SINGLE
     Route: 030
     Dates: start: 20071016, end: 20071016
  3. LANDSEN [Concomitant]
     Indication: EPILEPSY

REACTIONS (3)
  - CHOLECYSTITIS [None]
  - PNEUMONIA ASPIRATION [None]
  - PYOTHORAX [None]
